FAERS Safety Report 10268844 (Version 2)
Quarter: 2014Q4

REPORT INFORMATION
  Report Type: Spontaneous
  Country: US (occurrence: US)
  Receive Date: 20140630
  Receipt Date: 20141223
  Transmission Date: 20150528
  Serious: Yes (Hospitalization, Other)
  Sender: FDA-Public Use
  Company Number: US-GLAXOSMITHKLINE-A1079054A

PATIENT
  Age: 76 Year
  Sex: Female

DRUGS (12)
  1. ASPIRIN (BABY) [Concomitant]
  2. ANTIBIOTICS (DRUG NAME UNKNOWN) [Concomitant]
  3. KEPPRA [Concomitant]
     Active Substance: LEVETIRACETAM
  4. CENTRUM [Concomitant]
     Active Substance: VITAMINS
  5. OXYCONTIN [Concomitant]
     Active Substance: OXYCODONE HYDROCHLORIDE
  6. GABAPENTIN. [Concomitant]
     Active Substance: GABAPENTIN
  7. BENADRYL [Concomitant]
     Active Substance: DIPHENHYDRAMINE HYDROCHLORIDE
  8. AZITHROMYCIN [Concomitant]
     Active Substance: AZITHROMYCIN ANHYDROUS
  9. AMOXICILLIN. [Concomitant]
     Active Substance: AMOXICILLIN
  10. CALCIUM WITH VITAMIN D [Concomitant]
     Active Substance: CALCIUM\VITAMIN D
  11. ADVAIR HFA [Suspect]
     Active Substance: FLUTICASONE PROPIONATE\SALMETEROL XINAFOATE
     Indication: ASTHMA
     Dosage: 1 PUFF(S), BID
     Route: 065
     Dates: start: 20081231
  12. NORCO [Concomitant]
     Active Substance: ACETAMINOPHEN\HYDROCODONE BITARTRATE

REACTIONS (6)
  - Malaise [Unknown]
  - Chills [Recovered/Resolved]
  - Pneumonia [Recovering/Resolving]
  - Influenza [Recovering/Resolving]
  - Asthenia [Recovering/Resolving]
  - Nausea [Recovering/Resolving]

NARRATIVE: CASE EVENT DATE: 201412
